FAERS Safety Report 5021127-X (Version None)
Quarter: 2006Q2

REPORT INFORMATION
  Report Type: 
  Country: None (occurrence: None)
  Receive Date: 20060605
  Receipt Date: 20060523
  Transmission Date: 20061013
  Serious: Yes (Other)
  Sender: FDA-Public Use
  Company Number: 2006067144

PATIENT
  Age: 16 Year
  Sex: Female

DRUGS (2)
  1. GEODON [Suspect]
     Indication: ILL-DEFINED DISORDER
  2. RISPERDAL [Suspect]
     Indication: ILL-DEFINED DISORDER
     Dosage: 2MG (1 D), UNKNOWN

REACTIONS (1)
  - PITUITARY TUMOUR BENIGN [None]
